FAERS Safety Report 20084567 (Version 4)
Quarter: 2022Q1

REPORT INFORMATION
  Report Type: Spontaneous
  Country: FR (occurrence: FR)
  Receive Date: 20211118
  Receipt Date: 20220214
  Transmission Date: 20220423
  Serious: Yes (Hospitalization, Other)
  Sender: FDA-Public Use
  Company Number: FR-ACTAVISPR-ACTA001313

PATIENT
  Age: 37 Year
  Sex: Female

DRUGS (11)
  1. AMOXICILLIN [Suspect]
     Active Substance: AMOXICILLIN
     Indication: Pharyngitis
     Dosage: UNK
     Route: 065
     Dates: start: 20050822, end: 20050826
  2. AMOXICILLIN [Suspect]
     Active Substance: AMOXICILLIN
     Indication: Conjunctivitis
  3. AMOXICILLIN [Suspect]
     Active Substance: AMOXICILLIN
     Indication: Pyrexia
  4. IBUPROFEN [Suspect]
     Active Substance: IBUPROFEN
     Indication: Pharyngitis
     Dosage: UNK
     Route: 065
     Dates: start: 20050822, end: 20050901
  5. IBUPROFEN [Suspect]
     Active Substance: IBUPROFEN
     Indication: Conjunctivitis
  6. IBUPROFEN [Suspect]
     Active Substance: IBUPROFEN
     Indication: Pyrexia
  7. ETHINYL ESTRADIOL\LEVONORGESTREL [Concomitant]
     Active Substance: ETHINYL ESTRADIOL\LEVONORGESTREL
     Indication: Oral contraception
     Dosage: UNK
     Route: 065
  8. URSODIOL [Concomitant]
     Active Substance: URSODIOL
     Indication: Product used for unknown indication
     Dosage: 20 MILLIGRAM/KILOGRAM, ONCE A DAY
     Route: 065
     Dates: start: 20051010
  9. HYALURONIC ACID [Concomitant]
     Active Substance: HYALURONIC ACID
     Indication: Eye injury
     Dosage: UNK
     Route: 047
     Dates: start: 20051010
  10. Eugynon [Concomitant]
     Indication: Contraception
     Dosage: UNK
     Route: 065
  11. RETINOL [Concomitant]
     Active Substance: RETINOL
     Indication: Product used for unknown indication
     Dosage: UNK
     Route: 065
     Dates: start: 20051010

REACTIONS (15)
  - Stevens-Johnson syndrome [Recovering/Resolving]
  - Hepatitis cholestatic [Recovering/Resolving]
  - Chromaturia [Unknown]
  - Jaundice [Unknown]
  - Visual acuity reduced [Unknown]
  - Ulcerative keratitis [Recovering/Resolving]
  - Dermatitis bullous [Recovered/Resolved]
  - Erythema [Recovered/Resolved]
  - Rash pruritic [Recovered/Resolved]
  - Lymphadenopathy [Unknown]
  - Rash maculo-papular [Recovered/Resolved]
  - Keratitis [Recovering/Resolving]
  - Blepharitis [Unknown]
  - Eye pain [Unknown]
  - Photophobia [Unknown]

NARRATIVE: CASE EVENT DATE: 20050825
